FAERS Safety Report 17293297 (Version 2)
Quarter: 2020Q1

REPORT INFORMATION
  Report Type: Spontaneous
  Country: US (occurrence: US)
  Receive Date: 20200121
  Receipt Date: 20200219
  Transmission Date: 20200409
  Serious: Yes (Other)
  Sender: FDA-Public Use
  Company Number: US-BAYER-2020-010941

PATIENT
  Age: 30 Year
  Sex: Female
  Weight: 67.13 kg

DRUGS (1)
  1. MIRENA [Suspect]
     Active Substance: LEVONORGESTREL
     Indication: CONTRACEPTION
     Dosage: 20 MCG/24HR, CONT
     Route: 015
     Dates: start: 20190417

REACTIONS (4)
  - Embedded device [Recovering/Resolving]
  - Abdominal pain lower [Recovering/Resolving]
  - Pain [Recovering/Resolving]
  - Device issue [Recovering/Resolving]

NARRATIVE: CASE EVENT DATE: 20190906
